FAERS Safety Report 15521928 (Version 1)
Quarter: 2018Q4

REPORT INFORMATION
  Report Type: Report from Study
  Country: US (occurrence: US)
  Receive Date: 20181017
  Receipt Date: 20181017
  Transmission Date: 20190205
  Serious: No
  Sender: FDA-Public Use
  Company Number: US-AMGEN-USASL2018119746

PATIENT
  Age: 77 Year
  Sex: Female

DRUGS (26)
  1. FLUCONAZOLE. [Concomitant]
     Active Substance: FLUCONAZOLE
     Dosage: 200 MG, QD (AS NEEDED)
     Route: 048
  2. OMEPRAZOLE. [Concomitant]
     Active Substance: OMEPRAZOLE
     Dosage: 40 MG, QD
     Route: 048
  3. PROBIOTIC [Concomitant]
     Active Substance: PROBIOTICS NOS
     Dosage: 1 DF, QD
     Route: 048
  4. STOOL SOFTENER (DOCUSATE) [Concomitant]
     Active Substance: DOCUSATE
     Dosage: 100 MG, QD
     Route: 048
  5. REPATHA [Suspect]
     Active Substance: EVOLOCUMAB
     Indication: CAROTID ARTERY OCCLUSION
  6. REPATHA [Suspect]
     Active Substance: EVOLOCUMAB
     Indication: CAROTID ARTERY STENOSIS
  7. REPATHA [Suspect]
     Active Substance: EVOLOCUMAB
     Indication: PERIPHERAL ARTERIAL OCCLUSIVE DISEASE
  8. REPATHA [Suspect]
     Active Substance: EVOLOCUMAB
     Indication: HYPERLIPIDAEMIA
     Dosage: 140 MG/ML, Q2WK
     Route: 058
     Dates: start: 20180823, end: 201809
  9. ASPIRIN CHILDREN [Concomitant]
     Active Substance: ASPIRIN
     Dosage: 81 MG, QD
  10. DICLOFENAC SODIUM. [Concomitant]
     Active Substance: DICLOFENAC SODIUM
     Dosage: 75 MG, BID
     Route: 048
  11. FISH OIL [Concomitant]
     Active Substance: FISH OIL
     Dosage: 100 MG, QD
     Route: 048
  12. LOSARTAN. [Concomitant]
     Active Substance: LOSARTAN
     Dosage: 1 DF, QD
     Route: 048
  13. NITROFURANTOIN MACROCRYSTALS [Concomitant]
     Active Substance: NITROFURANTOIN
     Dosage: 100 MG, QD
     Route: 048
  14. VITAMIN D3 [Concomitant]
     Active Substance: CHOLECALCIFEROL
     Dosage: 5000 UNIT, QD
     Route: 048
  15. CHLORPHENIRAMINE. [Concomitant]
     Active Substance: CHLORPHENIRAMINE
     Dosage: 4 MG, QD
     Route: 048
  16. RANITIDINE. [Concomitant]
     Active Substance: RANITIDINE
     Dosage: 150 MG, QD (AT NIGHT)
     Route: 048
  17. REPATHA [Suspect]
     Active Substance: EVOLOCUMAB
     Indication: ARTERIOSCLEROSIS CORONARY ARTERY
  18. TEMAZEPAM. [Concomitant]
     Active Substance: TEMAZEPAM
     Dosage: 30 MG, QD
     Route: 048
  19. MAGNESIUM OXIDE. [Concomitant]
     Active Substance: MAGNESIUM OXIDE
     Dosage: 250 MG, QD
     Route: 048
  20. VAGIFEM [Concomitant]
     Active Substance: ESTRADIOL
     Dosage: 100 MUG, (TWO TIMES WEEKLY)
     Route: 067
  21. FLAXSEED [Concomitant]
     Active Substance: FLAX SEED
     Dosage: 1000 MG, QD
     Route: 048
  22. GARLIC. [Concomitant]
     Active Substance: GARLIC
     Dosage: 1000 MG, QD
     Route: 048
  23. TRAMADOL. [Concomitant]
     Active Substance: TRAMADOL
     Dosage: 50 MG, (1-2 TABLET AS NEEDED)
     Route: 048
  24. DIPHENHYDRAMINE. [Concomitant]
     Active Substance: DIPHENHYDRAMINE
     Indication: HYPERSENSITIVITY
     Dosage: 25 MG, QD
     Route: 048
  25. OMEGA 3 [Concomitant]
     Active Substance: OMEGA-3 FATTY ACIDS
     Dosage: 360 DF, QD (AT NIGHT)
     Route: 048
  26. XANAX [Concomitant]
     Active Substance: ALPRAZOLAM
     Dosage: 0.5 MG, AS NECESSARY
     Route: 048

REACTIONS (13)
  - Oropharyngeal pain [Unknown]
  - Oedema [Unknown]
  - Myalgia [Unknown]
  - Pain in extremity [Not Recovered/Not Resolved]
  - Sneezing [Unknown]
  - Intermittent claudication [Unknown]
  - Rhinorrhoea [Unknown]
  - Sleep disorder due to a general medical condition [Unknown]
  - Influenza like illness [Recovering/Resolving]
  - Productive cough [Unknown]
  - Headache [Unknown]
  - Nasal congestion [Unknown]
  - Gait disturbance [Not Recovered/Not Resolved]

NARRATIVE: CASE EVENT DATE: 2018
